FAERS Safety Report 5974241-6 (Version None)
Quarter: 2008Q4

REPORT INFORMATION
  Report Type: 
  Country: None (occurrence: None)
  Receive Date: 20081128
  Receipt Date: 20081117
  Transmission Date: 20090506
  Serious: Yes (Life-Threatening, Hospitalization)
  Sender: FDA-Public Use
  Company Number: GXKR2008GB10993

PATIENT
  Age: 23 Year
  Sex: Female

DRUGS (4)
  1. LAMOTRIGINE [Suspect]
     Indication: INCORRECT DOSE ADMINISTERED
     Dosage: 9.2 G, ONCE/SINGLE
  2. CHLORPHENIRAMINE MALEATE [Suspect]
     Indication: INCORRECT DOSE ADMINISTERED
     Dosage: 56 MG, ONCE/SINGLE
  3. CITALOPRAM HYDROBROMIDE [Suspect]
     Indication: INCORRECT DOSE ADMINISTERED
     Dosage: 220 MG, ONCE/SINGLE
  4. ALCOHOL (ETHANOL) [Concomitant]

REACTIONS (15)
  - AGITATION [None]
  - BLOOD PRESSURE INCREASED [None]
  - BODY TEMPERATURE INCREASED [None]
  - DEPRESSED LEVEL OF CONSCIOUSNESS [None]
  - ELECTROCARDIOGRAM QRS COMPLEX PROLONGED [None]
  - ELECTROCARDIOGRAM QT PROLONGED [None]
  - ENDOTRACHEAL INTUBATION [None]
  - METABOLIC ACIDOSIS [None]
  - MULTIPLE DRUG OVERDOSE INTENTIONAL [None]
  - NYSTAGMUS [None]
  - PUPILLARY REFLEX IMPAIRED [None]
  - RESPIRATORY RATE INCREASED [None]
  - SINUS TACHYCARDIA [None]
  - TREMOR [None]
  - VOMITING [None]
